FAERS Safety Report 9885084 (Version 1)
Quarter: 2014Q1

REPORT INFORMATION
  Report Type: Spontaneous
  Country: JP (occurrence: JP)
  Receive Date: 20140210
  Receipt Date: 20140210
  Transmission Date: 20141002
  Serious: Yes (Other)
  Sender: FDA-Public Use
  Company Number: JP-PFIZER INC-2014033695

PATIENT
  Age: 86 Day
  Sex: Male

DRUGS (5)
  1. HYDROCORTISONE SODIUM SUCCINATE [Suspect]
     Indication: CIRCULATORY COLLAPSE
     Dosage: UNK
  2. HYDROCORTISONE SODIUM SUCCINATE [Suspect]
     Indication: BRONCHOPULMONARY DYSPLASIA
  3. FUROSEMIDE [Suspect]
     Dosage: 100 MICROG/DAY X40 DAYS
  4. DEXAMETHASONE [Suspect]
     Dosage: UNK
  5. FLUTICASONE [Concomitant]
     Route: 061

REACTIONS (2)
  - Humerus fracture [Recovering/Resolving]
  - Femur fracture [Recovering/Resolving]
